FAERS Safety Report 26102176 (Version 1)
Quarter: 2025Q4

REPORT INFORMATION
  Report Type: Spontaneous
  Country: US (occurrence: US)
  Receive Date: 20251128
  Receipt Date: 20251128
  Transmission Date: 20260117
  Serious: No
  Sender: ALEXION PHARMACEUTICALS
  Company Number: US-AstraZeneca-CH-00999634A

PATIENT
  Sex: Female

DRUGS (1)
  1. CRESTOR [Suspect]
     Active Substance: ROSUVASTATIN CALCIUM
     Dosage: UNK
     Route: 065

REACTIONS (10)
  - Adverse drug reaction [Unknown]
  - Insurance issue [Unknown]
  - Drug ineffective [Unknown]
  - No adverse event [Unknown]
  - Therapy change [Unknown]
  - Therapy responder [Unknown]
  - Headache [Unknown]
  - Arthralgia [Unknown]
  - Myalgia [Unknown]
  - Asthenia [Unknown]

NARRATIVE: CASE EVENT DATE: 20190101
